FAERS Safety Report 8484198-4 (Version None)
Quarter: 2012Q3

REPORT INFORMATION
  Report Type: 
  Country: None (occurrence: None)
  Receive Date: 20120703
  Receipt Date: 20120618
  Transmission Date: 20120928
  Serious: No
  Sender: FDA-Public Use
  Company Number: US-JNJFOC-20120609236

PATIENT
  Sex: Female
  Weight: 77.11 kg

DRUGS (13)
  1. DURAGESIC-100 [Suspect]
     Route: 062
  2. DURAGESIC-100 [Suspect]
     Route: 062
  3. FUROSEMIDE [Concomitant]
     Indication: FLUID RETENTION
     Route: 048
  4. DURAGESIC-100 [Suspect]
     Route: 062
  5. DURAGESIC-100 [Suspect]
     Route: 062
  6. DURAGESIC-100 [Suspect]
     Route: 062
  7. DURAGESIC-100 [Suspect]
     Route: 062
     Dates: start: 20110101, end: 20110101
  8. SIMVASTATIN [Concomitant]
     Indication: BLOOD CHOLESTEROL
     Route: 048
  9. DURAGESIC-100 [Suspect]
     Route: 062
  10. SALAGEN [Concomitant]
     Route: 048
  11. OMEPRAZOLE [Concomitant]
     Indication: GASTRITIS
     Route: 048
  12. DURAGESIC-100 [Suspect]
     Indication: BACK PAIN
     Route: 062
  13. DURAGESIC-100 [Suspect]
     Route: 062
     Dates: start: 20110101, end: 20110101

REACTIONS (6)
  - DRUG EFFECT DECREASED [None]
  - PAIN [None]
  - INAPPROPRIATE SCHEDULE OF DRUG ADMINISTRATION [None]
  - DRUG EFFECT INCREASED [None]
  - ANXIETY [None]
  - PRODUCT QUALITY ISSUE [None]
